FAERS Safety Report 23728634 (Version 3)
Quarter: 2025Q2

REPORT INFORMATION
  Report Type: Spontaneous
  Country: PK (occurrence: PK)
  Receive Date: 20240410
  Receipt Date: 20250421
  Transmission Date: 20250717
  Serious: Yes (Other)
  Sender: PFIZER
  Company Number: PK-PFIZER INC-PV202400046272

PATIENT
  Age: 65 Year
  Sex: Female

DRUGS (3)
  1. IBRANCE [Suspect]
     Active Substance: PALBOCICLIB
     Indication: Breast cancer female
     Route: 048
     Dates: start: 20230227
  2. IBRANCE [Suspect]
     Active Substance: PALBOCICLIB
     Route: 048
     Dates: start: 20230302
  3. FEMARA [Concomitant]
     Active Substance: LETROZOLE

REACTIONS (4)
  - Carbohydrate antigen 15-3 increased [Unknown]
  - Invasive lobular breast carcinoma [Unknown]
  - Metastasis [Unknown]
  - Pain [Unknown]

NARRATIVE: CASE EVENT DATE: 20231118
